FAERS Safety Report 5862672-4 (Version None)
Quarter: 2008Q3

REPORT INFORMATION
  Report Type: 
  Country: None (occurrence: None)
  Receive Date: 20080828
  Receipt Date: 20080818
  Transmission Date: 20090109
  Serious: Yes (Other)
  Sender: FDA-Public Use
  Company Number: US-AMGEN-US302852

PATIENT
  Age: 21 Year
  Sex: Female

DRUGS (3)
  1. ENBREL [Suspect]
     Indication: JUVENILE ARTHRITIS
     Route: 065
  2. METHOTREXATE SODIUM [Concomitant]
     Route: 058
  3. UNSPECIFIED HOMEOPATHIC [Concomitant]
     Route: 065

REACTIONS (3)
  - HODGKIN'S DISEASE [None]
  - JUVENILE ARTHRITIS [None]
  - OVARIAN LOW MALIGNANT POTENTIAL TUMOUR [None]
